FAERS Safety Report 8292396-8 (Version None)
Quarter: 2012Q2

REPORT INFORMATION
  Report Type: 
  Country: None (occurrence: None)
  Receive Date: 20120417
  Receipt Date: 20120131
  Transmission Date: 20120825
  Serious: No
  Sender: FDA-Public Use
  Company Number: US-BAUSCH-2012BL000602

PATIENT
  Age: 62 Year
  Sex: Female

DRUGS (2)
  1. KENALOG [Concomitant]
     Dates: start: 20111206, end: 20111206
  2. LATANOPROST [Suspect]
     Indication: GLAUCOMA
     Route: 047
     Dates: start: 20111101, end: 20120101

REACTIONS (3)
  - INTRAOCULAR PRESSURE INCREASED [None]
  - EYE IRRITATION [None]
  - OCULAR HYPERAEMIA [None]
